FAERS Safety Report 13585847 (Version 1)
Quarter: 2017Q2

REPORT INFORMATION
  Report Type: Spontaneous
  Country: US (occurrence: US)
  Receive Date: 20170526
  Receipt Date: 20170526
  Transmission Date: 20170830
  Serious: No
  Sender: FDA-Public Use
  Company Number: US-AMGEN-USASP2017079065

PATIENT
  Sex: Female

DRUGS (1)
  1. ENBREL [Suspect]
     Active Substance: ETANERCEPT
     Indication: RHEUMATOID ARTHRITIS
     Dosage: 25 MG, QWK
     Route: 058

REACTIONS (7)
  - Haemoglobin decreased [Unknown]
  - Respiratory tract congestion [Unknown]
  - Rash [Unknown]
  - Fatigue [Unknown]
  - Sinus congestion [Unknown]
  - Viral upper respiratory tract infection [Unknown]
  - Pain [Unknown]
